FAERS Safety Report 19550113 (Version 3)
Quarter: 2022Q2

REPORT INFORMATION
  Report Type: Spontaneous
  Country: JP (occurrence: JP)
  Receive Date: 20210715
  Receipt Date: 20220426
  Transmission Date: 20220721
  Serious: Yes (Other)
  Sender: FDA-Public Use
  Company Number: JP-SA-2021SA228858

PATIENT
  Age: 47 Year
  Sex: Male

DRUGS (1)
  1. DUPIXENT [Suspect]
     Active Substance: DUPILUMAB
     Indication: Dermatitis atopic
     Route: 058

REACTIONS (12)
  - Hodgkin^s disease nodular sclerosis stage IV [Recovering/Resolving]
  - Limb mass [Recovering/Resolving]
  - Axillary mass [Recovering/Resolving]
  - Chest wall mass [Recovering/Resolving]
  - Pigmentation disorder [Recovering/Resolving]
  - Rash [Recovering/Resolving]
  - Skin exfoliation [Recovering/Resolving]
  - Lymphadenopathy [Recovering/Resolving]
  - Erythema [Recovering/Resolving]
  - Composite lymphoma [Recovering/Resolving]
  - Peripheral T-cell lymphoma unspecified [Not Recovered/Not Resolved]
  - Neoplasm [Not Recovered/Not Resolved]
